FAERS Safety Report 20882015 (Version 2)
Quarter: 2022Q2

REPORT INFORMATION
  Report Type: Other
  Country: CA (occurrence: CA)
  Receive Date: 20220527
  Receipt Date: 20220606
  Transmission Date: 20220720
  Serious: Yes (Other)
  Sender: FDA-Public Use
  Company Number: CA-002147023-NVSC2020CA360739

PATIENT
  Weight: 38 kg

DRUGS (1)
  1. XOLAIR [Suspect]
     Active Substance: OMALIZUMAB
     Indication: Asthma
     Dosage: 300 MG, BIW
     Route: 058
     Dates: start: 202001

REACTIONS (2)
  - Pneumonia [Unknown]
  - Inappropriate schedule of product administration [Unknown]
